FAERS Safety Report 20967283 (Version 1)
Quarter: 2022Q2

REPORT INFORMATION
  Report Type: Spontaneous
  Country: US (occurrence: US)
  Receive Date: 20220616
  Receipt Date: 20220616
  Transmission Date: 20220720
  Serious: Yes (Hospitalization, Other)
  Sender: FDA-Public Use
  Company Number: US-SLATE RUN PHARMACEUTICALS-22US001143

PATIENT

DRUGS (8)
  1. AZITHROMYCIN [Suspect]
     Active Substance: AZITHROMYCIN
     Indication: Maternal exposure during pregnancy
     Dosage: UNK
  2. OXYGEN [Concomitant]
     Active Substance: OXYGEN
     Indication: Maternal exposure during pregnancy
  3. COVID-19 CONVALESCENT PLASMA [Concomitant]
     Active Substance: COVID-19 CONVALESCENT PLASMA
     Indication: Maternal exposure during pregnancy
  4. REMDESIVIR [Concomitant]
     Active Substance: REMDESIVIR
     Indication: Maternal exposure during pregnancy
  5. TOCILIZUMAB [Concomitant]
     Active Substance: TOCILIZUMAB
     Indication: Maternal exposure during pregnancy
  6. UNSPECIFIED INGREDIENT [Concomitant]
     Active Substance: UNSPECIFIED INGREDIENT
     Indication: Maternal exposure during pregnancy
  7. HYDROXYCHLOROQUINE [Concomitant]
     Active Substance: HYDROXYCHLOROQUINE
     Indication: Maternal exposure during pregnancy
  8. CEFTRIAXONE [Concomitant]
     Active Substance: CEFTRIAXONE
     Indication: Maternal exposure during pregnancy

REACTIONS (14)
  - Foetal growth restriction [Unknown]
  - Cerebral ventricle dilatation [Unknown]
  - Single umbilical artery [Unknown]
  - Brain oedema [Unknown]
  - Intraventricular haemorrhage neonatal [Unknown]
  - Cerebral atrophy [Unknown]
  - Transient tachypnoea of the newborn [Unknown]
  - Hypoglycaemia neonatal [Unknown]
  - Foetal distress syndrome [Unknown]
  - Hypertonia neonatal [Unknown]
  - Tremor neonatal [Unknown]
  - Hyperbilirubinaemia neonatal [Unknown]
  - Selective eating disorder [Unknown]
  - Foetal exposure during pregnancy [Unknown]
